FAERS Safety Report 15469119 (Version 1)
Quarter: 2018Q4

REPORT INFORMATION
  Report Type: Spontaneous
  Country: JP (occurrence: JP)
  Receive Date: 20181005
  Receipt Date: 20181005
  Transmission Date: 20190205
  Serious: Yes (Death, Other)
  Sender: FDA-Public Use
  Company Number: JP-TEVA-2018-JP-003016J

PATIENT
  Sex: Male

DRUGS (2)
  1. DOCETAXEL. [Concomitant]
     Active Substance: DOCETAXEL
     Route: 065
  2. PREDNISOLONE TABLETS 5MG. [Suspect]
     Active Substance: PREDNISOLONE
     Indication: HORMONE-REFRACTORY PROSTATE CANCER
     Dosage: 10 MILLIGRAM DAILY;
     Route: 048

REACTIONS (13)
  - Nausea [Unknown]
  - Small intestinal obstruction [Fatal]
  - Thrombocytopenia [Unknown]
  - Transaminases increased [Unknown]
  - Fatigue [Unknown]
  - Decreased appetite [Unknown]
  - Stomatitis [Unknown]
  - Diarrhoea [Unknown]
  - Anaemia [Unknown]
  - Interstitial lung disease [Fatal]
  - Leukopenia [Unknown]
  - Device related infection [Unknown]
  - Small intestinal perforation [Unknown]
